FAERS Safety Report 8532982-0 (Version None)
Quarter: 2012Q3

REPORT INFORMATION
  Report Type: 
  Country: None (occurrence: None)
  Receive Date: 20120724
  Receipt Date: 20120712
  Transmission Date: 20120928
  Serious: Yes (Other)
  Sender: FDA-Public Use
  Company Number: US-VERTEX PHARMACEUTICALS INC.-AE-2012-010386

PATIENT
  Sex: Female
  Weight: 72.64 kg

DRUGS (3)
  1. PEGASYS [Concomitant]
     Indication: HEPATITIS C
     Route: 058
     Dates: start: 20120427
  2. RIBAVIRIN [Concomitant]
     Indication: HEPATITIS C
     Route: 048
     Dates: start: 20120427
  3. INCIVEK [Suspect]
     Indication: HEPATITIS C
     Route: 048
     Dates: start: 20120427

REACTIONS (7)
  - EXTERNAL EAR INFLAMMATION [None]
  - DRUG DOSE OMISSION [None]
  - VISION BLURRED [None]
  - GINGIVAL DISORDER [None]
  - SKIN EXFOLIATION [None]
  - GENERALISED ERYTHEMA [None]
  - PRURITUS [None]
